FAERS Safety Report 10519311 (Version 1)
Quarter: 2014Q4

REPORT INFORMATION
  Report Type: Spontaneous
  Country: US (occurrence: US)
  Receive Date: 20141015
  Receipt Date: 20141015
  Transmission Date: 20150528
  Serious: No
  Sender: FDA-Public Use
  Company Number: US-BAYER-2014-150539

PATIENT
  Age: 76 Year
  Sex: Male

DRUGS (4)
  1. XOFIGO [Suspect]
     Active Substance: RADIUM RA-223 DICHLORIDE
     Dosage: UNK
     Dates: start: 20141003
  2. COUMADIN [Concomitant]
     Active Substance: WARFARIN SODIUM
     Indication: ATRIAL FIBRILLATION
     Dosage: UNK
     Dates: start: 20141003
  3. MORPHINE [Concomitant]
     Active Substance: MORPHINE
     Dosage: IR IN BETWEEN
  4. MORPHINE [Concomitant]
     Active Substance: MORPHINE
     Dosage: SA 30 MG, TWICE A DAY

REACTIONS (2)
  - Pain [None]
  - Injection site bruising [None]
